FAERS Safety Report 23349045 (Version 1)
Quarter: 2023Q4

REPORT INFORMATION
  Report Type: Spontaneous
  Country: JP (occurrence: JP)
  Receive Date: 20231229
  Receipt Date: 20231229
  Transmission Date: 20240110
  Serious: Yes (Life-Threatening, Hospitalization, Other)
  Sender: FDA-Public Use
  Company Number: JP-Merck Healthcare KGaA-2023466489

PATIENT
  Age: 80 Year
  Sex: Female
  Weight: 36 kg

DRUGS (12)
  1. METGLUCO [Suspect]
     Active Substance: METFORMIN HYDROCHLORIDE
     Indication: Type 2 diabetes mellitus
     Route: 048
  2. TAGAMET [Suspect]
     Active Substance: CIMETIDINE
     Indication: Gastric ulcer
     Route: 048
  3. MOSAPRIDE CITRATE [Suspect]
     Active Substance: MOSAPRIDE CITRATE
     Indication: Product used for unknown indication
     Route: 048
  4. BIO-THREE [Concomitant]
     Active Substance: HERBALS
     Indication: Product used for unknown indication
     Dosage: 2 TABLETS/DAY IN 2 DIVIDED DOSES AFTER BREAKFAST AND SUPPER
  5. AMLODIPINE BESYLATE\VALSARTAN [Concomitant]
     Active Substance: AMLODIPINE BESYLATE\VALSARTAN
     Indication: Product used for unknown indication
     Dosage: 1 TABLET/DAY ONCE DAILY AFTER BREAKFAST
  6. ESAXERENONE [Concomitant]
     Active Substance: ESAXERENONE
     Indication: Product used for unknown indication
     Dosage: 1 TABLET/DAY ONCE DAILY AFTER BREAKFAST
  7. ASPIRIN [Concomitant]
     Active Substance: ASPIRIN
     Indication: Prophylaxis
     Dosage: AFTER BREAKFAST AND SUPPER, FOR PREVENTION OF ARTERIOSCLEROSIS
  8. REBAMIPIDE [Concomitant]
     Active Substance: REBAMIPIDE
     Indication: Product used for unknown indication
     Dosage: MUCOSTA (REBAMIPIDE) 100 MG, TWICE DAILY AFTER BREAKFAST AND SUPPER
  9. CALCIUM ASPARTATE [Concomitant]
     Active Substance: CALCIUM ASPARTATE
     Indication: Product used for unknown indication
  10. ALFACALCIDOL [Concomitant]
     Active Substance: ALFACALCIDOL
     Indication: Product used for unknown indication
  11. TOSUFLOXACIN TOSYLATE [Concomitant]
     Active Substance: TOSUFLOXACIN TOSYLATE
     Indication: Product used for unknown indication
  12. ALBUMIN TANNATE [Concomitant]
     Active Substance: ALBUMIN TANNATE
     Indication: Product used for unknown indication

REACTIONS (15)
  - Septic shock [Unknown]
  - Pneumonia [Unknown]
  - Enteritis [Unknown]
  - Streptococcal urinary tract infection [Recovering/Resolving]
  - Lactic acidosis [Recovering/Resolving]
  - Pleural effusion [Unknown]
  - Cardiomegaly [Unknown]
  - Atelectasis [Unknown]
  - Acute kidney injury [Recovering/Resolving]
  - Hyperkalaemia [Recovered/Resolved]
  - Cerebral infarction [Unknown]
  - Cerebral atrophy [Unknown]
  - Renal cyst [Unknown]
  - Adrenal adenoma [Unknown]
  - Contraindicated product administered [Unknown]
